FAERS Safety Report 7657042-2 (Version None)
Quarter: 2011Q3

REPORT INFORMATION
  Report Type: 
  Country: None (occurrence: None)
  Receive Date: 20110804
  Receipt Date: 20110722
  Transmission Date: 20111222
  Serious: No
  Sender: FDA-Public Use
  Company Number: US-B.I. PHARMACEUTICALS,INC./RIDGEFIELD-2011-BP-01059BP

PATIENT
  Sex: Male

DRUGS (12)
  1. DIGOXIN [Concomitant]
     Indication: ATRIAL FIBRILLATION
  2. PRADAXA [Suspect]
     Indication: ATRIAL FIBRILLATION
     Dosage: 300 MG
     Route: 048
     Dates: start: 20110103
  3. METOPROLOL TARTRATE [Concomitant]
     Indication: HYPERTENSION
     Dosage: 12.5 MG
     Route: 048
  4. ASPIRIN [Concomitant]
     Indication: PROPHYLAXIS
     Dosage: 81 MG
     Route: 048
  5. LISINOPRIL AND HYDROCHLOROTHIAZIDE [Concomitant]
     Indication: HYPERTENSION
     Route: 048
  6. SIMVASTATIN [Concomitant]
     Indication: BLOOD CHOLESTEROL INCREASED
     Dosage: 20 MG
     Route: 048
  7. ARICEPT [Concomitant]
     Dosage: 10 MG
     Route: 048
  8. ASPIRIN [Concomitant]
     Indication: ATRIAL FIBRILLATION
  9. AMIODARONE HCL [Concomitant]
     Indication: ATRIAL FIBRILLATION
     Dosage: 200 MG
     Route: 048
  10. GEMFIBROZIL [Concomitant]
     Indication: BLOOD CHOLESTEROL INCREASED
     Dosage: 1200 MG
     Route: 048
  11. FISH OIL [Concomitant]
     Indication: SUPPLEMENTATION THERAPY
     Dosage: 2100 MG
     Route: 048
  12. VITAMIN B-12 [Concomitant]
     Indication: SUPPLEMENTATION THERAPY
     Dosage: 1000 MG
     Route: 048

REACTIONS (3)
  - ABDOMINAL PAIN UPPER [None]
  - CHEST DISCOMFORT [None]
  - CONTUSION [None]
